FAERS Safety Report 16782357 (Version 1)
Quarter: 2019Q3

REPORT INFORMATION
  Report Type: Spontaneous
  Country: US (occurrence: US)
  Receive Date: 20190906
  Receipt Date: 20190906
  Transmission Date: 20191005
  Serious: Yes (Other)
  Sender: FDA-Public Use
  Company Number: US-TEVA-2019-US-1103860

PATIENT
  Sex: Female

DRUGS (1)
  1. ATENOLOL/CHLORTALIDONE TEVA [Suspect]
     Active Substance: ATENOLOL\CHLORTHALIDONE
     Indication: HYPERTENSION
     Dosage: ATENOLOL 100 MG AND CHLORTHALIDONE 25 MG

REACTIONS (4)
  - Blood pressure inadequately controlled [Unknown]
  - Drug ineffective [Unknown]
  - Drug hypersensitivity [Unknown]
  - Blood pressure increased [Unknown]
